FAERS Safety Report 5248600-3 (Version None)
Quarter: 2007Q1

REPORT INFORMATION
  Report Type: 
  Country: None (occurrence: None)
  Receive Date: 20070222
  Receipt Date: 20070212
  Transmission Date: 20070707
  Serious: Yes (Other)
  Sender: FDA-Public Use
  Company Number: GXKR2007GB01658

PATIENT
  Age: 46 Year
  Sex: Female

DRUGS (4)
  1. TRAMADOL HCL [Suspect]
     Indication: ABDOMINAL PAIN
     Dosage: 100 MG, QID, ORAL
     Route: 048
     Dates: start: 20061228, end: 20070116
  2. HYOSCINE HBR HYT [Concomitant]
  3. ESTRADIOL [Concomitant]
  4. QVAR (BECLOMETASONE DIPROPIONATE) [Concomitant]

REACTIONS (4)
  - DEPRESSION [None]
  - DISTURBANCE IN ATTENTION [None]
  - DRUG WITHDRAWAL SYNDROME [None]
  - IMPAIRED WORK ABILITY [None]
